FAERS Safety Report 9932773 (Version 2)
Quarter: 2014Q1

REPORT INFORMATION
  Report Type: Spontaneous
  Country: US (occurrence: US)
  Receive Date: 20140228
  Receipt Date: 20140228
  Transmission Date: 20141002
  Serious: No
  Sender: FDA-Public Use
  Company Number: US-ABBVIE-12P-163-0908360-00

PATIENT
  Sex: Male
  Weight: 88.53 kg

DRUGS (9)
  1. ANDROGEL 1% [Suspect]
     Indication: BLOOD TESTOSTERONE DECREASED
     Dosage: THREE PUMP ACTUATIONS DAILY
     Dates: start: 2007, end: 201112
  2. ANDROGEL 1.62% [Suspect]
     Indication: BLOOD TESTOSTERONE DECREASED
     Dates: start: 20111220, end: 201202
  3. UNKNOWN TESTOSTERONE INJECTION [Suspect]
     Indication: BLOOD TESTOSTERONE DECREASED
     Route: 050
     Dates: start: 201202
  4. ASPIRIN [Concomitant]
     Indication: CARDIAC DISORDER
  5. CENTRUM [Concomitant]
     Indication: PRODUCT USED FOR UNKNOWN INDICATION
  6. PLENDIL [Concomitant]
     Indication: HYPERTENSION
  7. BENICAR [Concomitant]
     Indication: HYPERTENSION
  8. DOXYCYCLINE [Concomitant]
     Indication: ACNE
  9. PRILOSEC [Concomitant]
     Indication: GASTROOESOPHAGEAL REFLUX DISEASE

REACTIONS (9)
  - Prostatomegaly [Not Recovered/Not Resolved]
  - Pain [Not Recovered/Not Resolved]
  - Back pain [Not Recovered/Not Resolved]
  - Loss of libido [Not Recovered/Not Resolved]
  - Pollakiuria [Not Recovered/Not Resolved]
  - Dysuria [Not Recovered/Not Resolved]
  - Paraesthesia [Recovered/Resolved]
  - Skin irritation [Unknown]
  - Dehydration [Recovered/Resolved]
